FAERS Safety Report 25621167 (Version 1)
Quarter: 2025Q3

REPORT INFORMATION
  Report Type: Spontaneous
  Country: MY (occurrence: MY)
  Receive Date: 20250730
  Receipt Date: 20250730
  Transmission Date: 20251021
  Serious: Yes (Other)
  Sender: ABBVIE
  Company Number: MY-PFIZER INC-202500148702

PATIENT
  Age: 43 Year
  Sex: Male

DRUGS (1)
  1. CEFTAROLINE FOSAMIL [Suspect]
     Active Substance: CEFTAROLINE FOSAMIL
     Indication: Evidence based treatment
     Dosage: 600 MG, 2X/DAY (12 HOURS)
     Route: 042

REACTIONS (2)
  - Ocular hyperaemia [Recovered/Resolved]
  - Rash [Recovered/Resolved]
